FAERS Safety Report 6863695-9 (Version None)
Quarter: 2010Q3

REPORT INFORMATION
  Report Type: 
  Country: None (occurrence: None)
  Receive Date: 20100720
  Receipt Date: 20100708
  Transmission Date: 20110219
  Serious: Yes (Hospitalization)
  Sender: FDA-Public Use
  Company Number: 7010573

PATIENT
  Age: 63 Year
  Sex: Female
  Weight: 71 kg

DRUGS (3)
  1. REBIF [Suspect]
     Indication: MULTIPLE SCLEROSIS
     Dosage: 44 MCG, 3 IN 1 WK, SUBCUTANEOUS
     Route: 058
     Dates: start: 20100426
  2. TIZANIDINE HCL [Concomitant]
  3. ESTRADIOL [Concomitant]

REACTIONS (5)
  - BACK PAIN [None]
  - BLADDER PROLAPSE [None]
  - FATIGUE [None]
  - INJECTION SITE ERYTHEMA [None]
  - TREATMENT FAILURE [None]
